FAERS Safety Report 8049158-6 (Version None)
Quarter: 2012Q1

REPORT INFORMATION
  Report Type: 
  Country: None (occurrence: None)
  Receive Date: 20120117
  Receipt Date: 20120113
  Transmission Date: 20120608
  Serious: Yes (Other)
  Sender: FDA-Public Use
  Company Number: US-JNJFOC-20110911433

PATIENT
  Sex: Female
  Weight: 61.24 kg

DRUGS (2)
  1. CHEMOTHERAPEUTICS NOS [Suspect]
     Indication: OVARIAN CANCER
     Route: 042
     Dates: start: 20110829
  2. DOXORUBICIN HCL [Suspect]
     Indication: OVARIAN CANCER
     Route: 042
     Dates: start: 20100101, end: 20110601

REACTIONS (5)
  - PLATELET COUNT DECREASED [None]
  - PAIN [None]
  - BEDRIDDEN [None]
  - HAEMOGLOBIN DECREASED [None]
  - ECCHYMOSIS [None]
